FAERS Safety Report 13836457 (Version 3)
Quarter: 2018Q1

REPORT INFORMATION
  Report Type: Spontaneous
  Country: US (occurrence: US)
  Receive Date: 20170804
  Receipt Date: 20180222
  Transmission Date: 20180508
  Serious: Yes (Hospitalization)
  Sender: FDA-Public Use
  Company Number: US-ACTELION-A-US2017-157457

PATIENT
  Age: 62 Year
  Sex: Female
  Weight: 53.97 kg

DRUGS (1)
  1. VELETRI [Suspect]
     Active Substance: EPOPROSTENOL
     Indication: PULMONARY ARTERIAL HYPERTENSION
     Dosage: 61 NG/KG, PER MIN
     Route: 042

REACTIONS (8)
  - Endoscopic retrograde cholangiopancreatography [Unknown]
  - Device related infection [Unknown]
  - Blood count abnormal [Unknown]
  - Oxygen therapy [Unknown]
  - Loss of consciousness [Unknown]
  - Gastrointestinal haemorrhage [Unknown]
  - Clostridium difficile infection [Unknown]
  - Catheter management [Unknown]
